FAERS Safety Report 4598804-8 (Version None)
Quarter: 2005Q1

REPORT INFORMATION
  Report Type: 
  Country: None (occurrence: None)
  Receive Date: 20050304
  Receipt Date: 20041210
  Transmission Date: 20050727
  Serious: Yes (Hospitalization)
  Sender: FDA-Public Use
  Company Number: PHHO2004JP17581

PATIENT
  Age: 61 Year
  Sex: Male
  Weight: 60 kg

DRUGS (16)
  1. CELLCEPT [Suspect]
     Indication: RENAL TRANSPLANT
     Dosage: 1000 MG, QD
     Route: 048
     Dates: start: 20041227, end: 20050104
  2. CELLCEPT [Suspect]
     Dosage: 750 MG, QD
     Route: 048
     Dates: start: 20050105, end: 20050106
  3. CELLCEPT [Suspect]
     Dosage: 500 MG, QD
     Route: 048
     Dates: start: 20050107, end: 20050117
  4. CELLCEPT [Suspect]
     Dosage: 250 MG, QD
     Route: 048
     Dates: start: 20050118, end: 20050125
  5. NEORAL [Suspect]
     Indication: RENAL TRANSPLANT
     Dosage: 300 MG, BID
     Route: 048
     Dates: start: 20041016, end: 20041019
  6. NEORAL [Suspect]
     Dosage: 250 MG, QD
     Route: 048
     Dates: start: 20041020, end: 20041031
  7. NEORAL [Suspect]
     Dosage: 300 MG, QD
     Route: 048
     Dates: start: 20041101, end: 20041117
  8. NEORAL [Suspect]
     Dosage: 250 MG, QD
     Route: 048
     Dates: start: 20041118, end: 20041121
  9. NEORAL [Suspect]
     Dosage: 200 MG, QD
     Route: 048
     Dates: start: 20041122
  10. BREDININ [Suspect]
     Indication: RENAL TRANSPLANT
     Dosage: 50 MG, QD
     Route: 048
     Dates: start: 20050118, end: 20050122
  11. BREDININ [Suspect]
     Dosage: 100 MG, QD
     Route: 048
     Dates: start: 20050123
  12. FTY720 VS MYCOPHENOLATE MOFETIL [Suspect]
     Indication: RENAL TRANSPLANT
     Dosage: CODE NOT BROKEN (HALF DOSE)
     Route: 048
     Dates: start: 20041108, end: 20041124
  13. FTY720 VS MYCOPHENOLATE MOFETIL [Suspect]
     Dosage: CODE NOT BROKEN (FULL DOSE)
     Route: 048
     Dates: start: 20041125, end: 20041219
  14. FTY720 VS MYCOPHENOLATE MOFETIL [Suspect]
     Dosage: CODE NOT BROKEN (DOSE REDUCED)
     Route: 048
     Dates: start: 20041220, end: 20041227
  15. FTY720 VS MYCOPHENOLATE MOFETIL [Suspect]
     Dosage: CODE NOT BROKEN
     Route: 048
     Dates: start: 20041016, end: 20041107
  16. PREDNISOLONE [Suspect]
     Indication: RENAL TRANSPLANT
     Dosage: 15 MG, BID
     Route: 048
     Dates: start: 20041017

REACTIONS (12)
  - ABDOMINAL DISTENSION [None]
  - ABDOMINAL PAIN [None]
  - ABDOMINAL STRANGULATED HERNIA [None]
  - CYTOMEGALOVIRUS ANTIGEN POSITIVE [None]
  - FLUID RETENTION [None]
  - HERNIA REPAIR [None]
  - INCISIONAL HERNIA [None]
  - PANCYTOPENIA [None]
  - PSEUDOMONAS INFECTION [None]
  - PYREXIA [None]
  - URINARY TRACT INFECTION [None]
  - URINE OUTPUT DECREASED [None]
